FAERS Safety Report 4623199-0 (Version None)
Quarter: 2005Q1

REPORT INFORMATION
  Report Type: 
  Country: None (occurrence: None)
  Receive Date: 20050329
  Receipt Date: 20050315
  Transmission Date: 20050727
  Serious: Yes (Hospitalization)
  Sender: FDA-Public Use
  Company Number: 2004BI001400

PATIENT
  Age: 74 Year
  Sex: Female

DRUGS (22)
  1. AVONEX [Suspect]
     Indication: MULTIPLE SCLEROSIS
     Dosage: 30 UG; QW; IM
     Route: 030
     Dates: start: 19970828, end: 20030830
  2. AVONEX [Suspect]
     Indication: MULTIPLE SCLEROSIS
     Dosage: 30 UG; QW; IM
     Route: 030
     Dates: start: 20030927
  3. TOPROL-XL [Concomitant]
  4. LIPITOR [Concomitant]
  5. NITROGLYCERIN [Concomitant]
  6. NIASPAN [Concomitant]
  7. FLONASE [Concomitant]
  8. PLAVIX [Concomitant]
  9. PRILOSEC [Concomitant]
  10. SYNTHROID [Concomitant]
  11. LASIX [Concomitant]
  12. K-DUR 10 [Concomitant]
  13. ALLEGRA [Concomitant]
  14. MULTI-VITAMIN [Concomitant]
  15. CALCIUM GLUCONATE [Concomitant]
  16. ZOLOFT [Concomitant]
  17. ASPIRIN [Concomitant]
  18. DIGOXIN [Concomitant]
  19. BEXTRA [Concomitant]
  20. METHOTREXATE [Concomitant]
  21. BACLOFEN [Concomitant]
  22. SOLU-MEDROL [Concomitant]

REACTIONS (2)
  - CORONARY ARTERY OCCLUSION [None]
  - DYSPNOEA [None]
